FAERS Safety Report 6016045-4 (Version None)
Quarter: 2008Q4

REPORT INFORMATION
  Report Type: 
  Country: None (occurrence: None)
  Receive Date: 20081217
  Receipt Date: 20080618
  Transmission Date: 20090506
  Serious: Yes (Other)
  Sender: FDA-Public Use
  Company Number: 2008BH006425

PATIENT

DRUGS (1)
  1. VANCOMYCIN HCL [Suspect]
     Indication: PROPHYLAXIS
     Dosage: ONCE;IV
     Route: 042
     Dates: start: 20080401, end: 20080401

REACTIONS (1)
  - ANAPHYLACTIC REACTION [None]
